FAERS Safety Report 5815918-2 (Version None)
Quarter: 2008Q3

REPORT INFORMATION
  Report Type: 
  Country: None (occurrence: None)
  Receive Date: 20080721
  Receipt Date: 20080715
  Transmission Date: 20090109
  Serious: Yes (Other)
  Sender: FDA-Public Use
  Company Number: FR-ROCHE-568255

PATIENT
  Sex: Female

DRUGS (6)
  1. XELODA [Suspect]
     Indication: BREAST CANCER
     Route: 048
     Dates: start: 20070503
  2. XELODA [Suspect]
     Dosage: DOSE DECREASED.
     Route: 048
  3. XELODA [Suspect]
     Dosage: DOSE DECREASED.
     Route: 048
     Dates: start: 20071115, end: 20080306
  4. XELODA [Suspect]
     Route: 048
  5. HERCEPTIN [Suspect]
     Indication: BREAST CANCER
     Dosage: IN ASSOCIATION WITH LETROZOLE (FEMARA); FORM:INJECTABLE SOLUTION
     Route: 042
     Dates: start: 20070201, end: 20080306
  6. HERCEPTIN [Suspect]
     Route: 042

REACTIONS (1)
  - VASCULITIS [None]
